FAERS Safety Report 19495622 (Version 1)
Quarter: 2021Q3

REPORT INFORMATION
  Report Type: Spontaneous
  Country: US (occurrence: US)
  Receive Date: 20210701
  Receipt Date: 20210701
  Transmission Date: 20211014
  Serious: Yes (Other)
  Sender: FDA-Public Use
  Company Number: None

PATIENT
  Age: 67 Year
  Sex: Female
  Weight: 78.75 kg

DRUGS (6)
  1. LOVASTATIN. [Concomitant]
     Active Substance: LOVASTATIN
  2. LOSARTIN POTASSIUM [Concomitant]
  3. VITAMIN D [Concomitant]
     Active Substance: VITAMIN D NOS
  4. LOSARTIN TABS 100MG [Suspect]
     Active Substance: LOSARTAN
     Indication: HYPERTENSION
     Dosage: ?          QUANTITY:90 DF DOSAGE FORM;?
     Route: 048
     Dates: start: 20210618, end: 20210629
  5. LEVOTHYROXINE. [Concomitant]
     Active Substance: LEVOTHYROXINE
  6. MULTIIVITAMIN [Concomitant]

REACTIONS (9)
  - Diarrhoea [None]
  - Product substitution issue [None]
  - Headache [None]
  - Dizziness [None]
  - Nausea [None]
  - Feeling abnormal [None]
  - Vomiting projectile [None]
  - Paraesthesia [None]
  - Blood pressure decreased [None]

NARRATIVE: CASE EVENT DATE: 20210621
